FAERS Safety Report 9467013 (Version 4)
Quarter: 2014Q1

REPORT INFORMATION
  Report Type: Spontaneous
  Country: US (occurrence: US)
  Receive Date: 20130820
  Receipt Date: 20140124
  Transmission Date: 20141002
  Serious: Yes (Hospitalization)
  Sender: FDA-Public Use
  Company Number: US-GLAXOSMITHKLINE-A1037492A

PATIENT
  Age: 71 Year
  Sex: Male

DRUGS (6)
  1. VENTOLIN [Suspect]
     Indication: PRODUCT USED FOR UNKNOWN INDICATION
     Dosage: 2PUFF THREE TIMES PER DAY
     Route: 055
     Dates: start: 201306
  2. WARFARIN [Concomitant]
  3. VIT D [Concomitant]
  4. LEVOTHYROXINE [Concomitant]
  5. UNKNOWN [Concomitant]
  6. ADVAIR [Concomitant]

REACTIONS (5)
  - Hypoxia [Recovered/Resolved]
  - Dyspnoea [Recovered/Resolved]
  - Influenza like illness [Recovered/Resolved]
  - Hallucination [Recovered/Resolved]
  - Cough [Unknown]
